FAERS Safety Report 10482827 (Version 2)
Quarter: 2014Q4

REPORT INFORMATION
  Report Type: Spontaneous
  Country: US (occurrence: US)
  Receive Date: 20140929
  Receipt Date: 20141021
  Transmission Date: 20150528
  Serious: No
  Sender: FDA-Public Use
  Company Number: US-GILEAD-2014-0116399

PATIENT
  Age: 39 Year
  Sex: Female

DRUGS (3)
  1. VELETRI [Concomitant]
     Active Substance: EPOPROSTENOL
     Indication: PRODUCT USED FOR UNKNOWN INDICATION
  2. LETAIRIS [Suspect]
     Active Substance: AMBRISENTAN
     Indication: PRODUCT USED FOR UNKNOWN INDICATION
     Dosage: 5 MG, QD
     Route: 065
     Dates: start: 20140609
  3. ADCIRCA [Concomitant]
     Active Substance: TADALAFIL
     Indication: PRODUCT USED FOR UNKNOWN INDICATION

REACTIONS (4)
  - Infusion site rash [Unknown]
  - Wound secretion [Unknown]
  - Infusion site erythema [Unknown]
  - Infusion site pain [Unknown]
